FAERS Safety Report 11005451 (Version 3)
Quarter: 2015Q2

REPORT INFORMATION
  Report Type: Spontaneous
  Country: US (occurrence: US)
  Receive Date: 20150409
  Receipt Date: 20150505
  Transmission Date: 20150821
  Serious: Yes (Other)
  Sender: FDA-Public Use
  Company Number: US-JNJFOC-20150112511

PATIENT
  Sex: Female

DRUGS (1)
  1. XARELTO [Suspect]
     Active Substance: RIVAROXABAN
     Indication: PRODUCT USED FOR UNKNOWN INDICATION
     Route: 048

REACTIONS (14)
  - Lip swelling [Recovered/Resolved]
  - Fall [Recovered/Resolved]
  - Concussion [Recovered/Resolved]
  - Stomatitis [Recovered/Resolved]
  - Wound haemorrhage [Recovered/Resolved]
  - Skin atrophy [Not Recovered/Not Resolved]
  - Anosmia [Not Recovered/Not Resolved]
  - Injury [Recovered/Resolved]
  - Ageusia [Not Recovered/Not Resolved]
  - Contusion [Recovered/Resolved]
  - Syncope [Recovered/Resolved]
  - Inappropriate schedule of drug administration [Unknown]
  - Laceration [Recovered/Resolved]
  - Oral bacterial infection [Recovered/Resolved]

NARRATIVE: CASE EVENT DATE: 2014
